FAERS Safety Report 25985143 (Version 1)
Quarter: 2025Q4

REPORT INFORMATION
  Report Type: Spontaneous
  Country: US (occurrence: None)
  Receive Date: 20251031
  Receipt Date: 20251031
  Transmission Date: 20260117
  Serious: Yes (Death)
  Sender: FDA-CTU
  Company Number: None

PATIENT
  Age: 70 Year
  Sex: Male

DRUGS (23)
  1. TADALAFIL [Suspect]
     Active Substance: TADALAFIL
     Indication: Pulmonary arterial hypertension
     Dosage: 20MG QD ORAL ?
     Route: 048
     Dates: start: 20231110, end: 20250831
  2. LOSARTAN [Concomitant]
     Active Substance: LOSARTAN
  3. PRAVASTATIN [Concomitant]
     Active Substance: PRAVASTATIN
  4. METOPROLOL [Concomitant]
     Active Substance: METOPROLOL
  5. ALLOPURINOL [Concomitant]
     Active Substance: ALLOPURINOL
  6. GABAPENTIN [Concomitant]
     Active Substance: GABAPENTIN
  7. santyl top oint [Concomitant]
  8. FLOMAX [Concomitant]
     Active Substance: TAMSULOSIN HYDROCHLORIDE
  9. mupirocin top oin [Concomitant]
  10. METOLAZONE [Concomitant]
     Active Substance: METOLAZONE
  11. anusol HC rect supp [Concomitant]
  12. ASPIRIN [Concomitant]
     Active Substance: ASPIRIN
  13. ZETIA [Concomitant]
     Active Substance: EZETIMIBE
  14. BUMETANIDE [Concomitant]
     Active Substance: BUMETANIDE
  15. POTASSIUM CHLORIDE [Concomitant]
     Active Substance: POTASSIUM CHLORIDE
  16. APIXABAN [Concomitant]
     Active Substance: APIXABAN
  17. INSULIN LISPRO [Concomitant]
     Active Substance: INSULIN LISPRO
  18. MAGNESIUM OXIDE [Concomitant]
     Active Substance: MAGNESIUM OXIDE
  19. JARDIANCE [Concomitant]
     Active Substance: EMPAGLIFLOZIN
  20. COENZYME Q10 [Concomitant]
     Active Substance: DIETARY SUPPLEMENT\UBIDECARENONE
  21. CHONDROITIN SULFATE (BOVINE)\GLUCOSAMINE SULFATE [Concomitant]
     Active Substance: CHONDROITIN SULFATE (BOVINE)\GLUCOSAMINE SULFATE
  22. FISH OIL [Concomitant]
     Active Substance: FISH OIL
  23. VITAMINS [Concomitant]
     Active Substance: VITAMINS

REACTIONS (1)
  - Death [None]

NARRATIVE: CASE EVENT DATE: 20250831
